FAERS Safety Report 11460814 (Version 1)
Quarter: 2015Q3

REPORT INFORMATION
  Report Type: Spontaneous
  Country: None (occurrence: JP)
  Receive Date: 20150904
  Receipt Date: 20150904
  Transmission Date: 20151125
  Serious: Yes (Other)
  Sender: FDA-Public Use
  Company Number: JP-ALLERGAN-1517851US

PATIENT
  Age: 80 Year
  Sex: Male

DRUGS (1)
  1. GATIFLO [Suspect]
     Active Substance: GATIFLOXACIN
     Indication: EYE INFECTION
     Dosage: 1 GTT, SINGLE
     Route: 047
     Dates: start: 20150812, end: 20150812

REACTIONS (7)
  - Dizziness [Recovered/Resolved]
  - Feeling abnormal [Recovered/Resolved]
  - Eye pain [Recovering/Resolving]
  - Nasal congestion [Recovered/Resolved]
  - Blood pressure increased [Not Recovered/Not Resolved]
  - Swelling face [Recovered/Resolved]
  - Hypersensitivity [Unknown]

NARRATIVE: CASE EVENT DATE: 201508
